FAERS Safety Report 14356317 (Version 1)
Quarter: 2018Q1

REPORT INFORMATION
  Report Type: Spontaneous
  Country: US (occurrence: US)
  Receive Date: 20180105
  Receipt Date: 20180105
  Transmission Date: 20180509
  Serious: No
  Sender: FDA-Public Use
  Company Number: US-ALLERGAN-1730543US

PATIENT
  Sex: Female

DRUGS (1)
  1. KYBELLA [Suspect]
     Active Substance: DEOXYCHOLIC ACID
     Indication: PRODUCT USED FOR UNKNOWN INDICATION
     Dosage: UNK UNK, SINGLE
     Route: 058
     Dates: start: 20170307, end: 20170307

REACTIONS (5)
  - Condition aggravated [Unknown]
  - Swelling [Unknown]
  - Drug ineffective [Unknown]
  - Hypoaesthesia [Unknown]
  - Injection site pain [Unknown]
